FAERS Safety Report 7501685-3 (Version None)
Quarter: 2011Q2

REPORT INFORMATION
  Report Type: 
  Country: None (occurrence: None)
  Receive Date: 20110525
  Receipt Date: 20110511
  Transmission Date: 20111010
  Serious: Yes (Hospitalization)
  Sender: FDA-Public Use
  Company Number: US-MYLANLABS-2011S1010017

PATIENT
  Age: 34 Year
  Sex: Male

DRUGS (2)
  1. MYCOPHENOLATE MOFETIL [Concomitant]
     Route: 065
     Dates: start: 20080101
  2. HYDROXYCHLOROQUINE SULFATE [Suspect]
     Route: 065

REACTIONS (1)
  - THROMBOTIC THROMBOCYTOPENIC PURPURA [None]
